FAERS Safety Report 21514526 (Version 1)
Quarter: 2022Q4

REPORT INFORMATION
  Report Type: Report from Study
  Country: JP (occurrence: JP)
  Receive Date: 20221027
  Receipt Date: 20221027
  Transmission Date: 20230112
  Serious: Yes (Death)
  Sender: FDA-Public Use
  Company Number: JP-PFIZER INC-PV202200082058

PATIENT

DRUGS (3)
  1. CISPLATIN [Suspect]
     Active Substance: CISPLATIN
     Indication: Oesophageal carcinoma
     Dosage: 60 MG/M2, ON DAY 1 (REPEATED EVERY 4 WEEKS)
     Route: 042
  2. DOCETAXEL [Suspect]
     Active Substance: DOCETAXEL
     Indication: Oesophageal carcinoma
     Dosage: 50 MG/M2, ON DAY 1 (REPEATED EVERY 4 WEEKS)
     Route: 042
  3. FLUOROURACIL [Suspect]
     Active Substance: FLUOROURACIL
     Indication: Oesophageal carcinoma
     Dosage: 600 MG/M2, ON DAYS 1 TO 4 (REPEATED EVERY 4 WEEKS)
     Route: 042

REACTIONS (1)
  - Pleural effusion [Fatal]
